FAERS Safety Report 4559295-6 (Version None)
Quarter: 2005Q1

REPORT INFORMATION
  Report Type: 
  Country: None (occurrence: None)
  Receive Date: 20050120
  Receipt Date: 20050120
  Transmission Date: 20050727
  Serious: Yes (Hospitalization)
  Sender: FDA-Public Use
  Company Number: None

PATIENT
  Age: 66 Year
  Sex: Male

DRUGS (7)
  1. GEMFIBROZIL [Suspect]
     Dosage: 600  BID
  2. SIMVASTATIN [Suspect]
     Dosage: 80 MG QD
  3. ALLOPURINOL [Concomitant]
  4. METOPROLOL [Concomitant]
  5. KCL TAB [Concomitant]
  6. LASIX [Concomitant]
  7. REGLAN [Concomitant]

REACTIONS (1)
  - RHABDOMYOLYSIS [None]
